FAERS Safety Report 4960844-4 (Version None)
Quarter: 2006Q1

REPORT INFORMATION
  Report Type: 
  Country: None (occurrence: None)
  Receive Date: 20060331
  Receipt Date: 20060331
  Transmission Date: 20060701
  Serious: Yes (Other)
  Sender: FDA-Public Use
  Company Number: None

PATIENT
  Age: 22 Year
  Sex: Female
  Weight: 67.1324 kg

DRUGS (1)
  1. AMBIEN [Suspect]
     Indication: INSOMNIA
     Dosage: 1 10 MG TABLET 1X MOUTH
     Route: 048
     Dates: start: 20040801

REACTIONS (6)
  - CONFUSIONAL STATE [None]
  - DELUSION OF GRANDEUR [None]
  - DISORIENTATION [None]
  - HALLUCINATION [None]
  - MYDRIASIS [None]
  - VERBAL ABUSE [None]
